FAERS Safety Report 16804203 (Version 1)
Quarter: 2019Q3

REPORT INFORMATION
  Report Type: Spontaneous
  Country: DE (occurrence: DE)
  Receive Date: 20190913
  Receipt Date: 20190913
  Transmission Date: 20191005
  Serious: Yes (Other)
  Sender: FDA-Public Use
  Company Number: DE-AUROBINDO-AUR-APL-2019-058347

PATIENT
  Age: 54 Year
  Sex: Male
  Weight: 90 kg

DRUGS (1)
  1. CEFUROXIME PUREN 500 MG FILM COATED TABLET [Suspect]
     Active Substance: CEFUROXIME
     Indication: EAR INFECTION
     Dosage: 1000 MILLIGRAM PER DAY, 2X500 MG, DAILY
     Route: 048
     Dates: start: 20190821, end: 20190826

REACTIONS (1)
  - Facial paralysis [Recovering/Resolving]

NARRATIVE: CASE EVENT DATE: 20190826
